FAERS Safety Report 4978533-9 (Version None)
Quarter: 2006Q1

REPORT INFORMATION
  Report Type: 
  Country: None (occurrence: None)
  Receive Date: 20060227
  Receipt Date: 20050523
  Transmission Date: 20060701
  Serious: Yes (Disabling)
  Sender: FDA-Public Use
  Company Number: WAES 0505USA02674

PATIENT
  Age: 46 Year
  Sex: Male
  Weight: 92.5338 kg

DRUGS (3)
  1. ZOCOR [Suspect]
     Indication: BLOOD CHOLESTEROL INCREASED
     Dosage: 40 MG DAILY PO
     Route: 048
  2. KLONOPIN [Concomitant]
  3. PROZAC [Concomitant]

REACTIONS (2)
  - MYALGIA [None]
  - PYREXIA [None]
